FAERS Safety Report 16269376 (Version 1)
Quarter: 2019Q2

REPORT INFORMATION
  Report Type: Spontaneous
  Country: US (occurrence: US)
  Receive Date: 20190502
  Receipt Date: 20190502
  Transmission Date: 20190711
  Serious: Yes (Other)
  Sender: FDA-Public Use
  Company Number: None

PATIENT
  Sex: Female
  Weight: 79.4 kg

DRUGS (13)
  1. TRAMADOL. [Concomitant]
     Active Substance: TRAMADOL
  2. DICLOFENAC [Concomitant]
     Active Substance: DICLOFENAC
  3. ESCITALOPRAM [Concomitant]
     Active Substance: ESCITALOPRAM OXALATE
  4. COMBIGAN [Concomitant]
     Active Substance: BRIMONIDINE TARTRATE\TIMOLOL MALEATE
  5. GLIPIZIDE. [Concomitant]
     Active Substance: GLIPIZIDE
  6. DUREZOL [Concomitant]
     Active Substance: DIFLUPREDNATE
  7. ATORVASTATIN [Concomitant]
     Active Substance: ATORVASTATIN
  8. IBRANCE [Suspect]
     Active Substance: PALBOCICLIB
     Indication: BREAST CANCER
     Dosage: ?          OTHER FREQUENCY:QD 3 WK ON 1WK OFF;?
     Route: 048
     Dates: start: 20190308, end: 20190502
  9. DOXEPIN [Concomitant]
     Active Substance: DOXEPIN
  10. ARIMIDEX [Concomitant]
     Active Substance: ANASTROZOLE
  11. TRADJENTA [Concomitant]
     Active Substance: LINAGLIPTIN
  12. LYRICA [Concomitant]
     Active Substance: PREGABALIN
  13. AMLODIPINE [Concomitant]
     Active Substance: AMLODIPINE BESYLATE

REACTIONS (1)
  - Neutropenia [None]
